FAERS Safety Report 4512671-X (Version None)
Quarter: 2004Q4

REPORT INFORMATION
  Report Type: 
  Country: None (occurrence: None)
  Receive Date: 20041012
  Receipt Date: 20040715
  Transmission Date: 20050328
  Serious: Yes (Other)
  Sender: FDA-Public Use
  Company Number: A03200402332

PATIENT
  Age: 74 Year
  Sex: Male

DRUGS (5)
  1. UROXATRAL [Suspect]
     Indication: BENIGN PROSTATIC HYPERPLASIA
     Dosage: 10 MG OD - ORAL
     Route: 048
     Dates: start: 20040713, end: 20040714
  2. METFORMIN [Concomitant]
  3. ALLOPURINOL [Concomitant]
  4. LEVOTHYROXINE SODIUM [Concomitant]
  5. ATORVASTATIN [Concomitant]

REACTIONS (2)
  - DIZZINESS [None]
  - HYPOTENSION [None]
